FAERS Safety Report 9802888 (Version 2)
Quarter: 2014Q1

REPORT INFORMATION
  Report Type: Report from Study
  Country: DE (occurrence: DE)
  Receive Date: 20140108
  Receipt Date: 20140108
  Transmission Date: 20141002
  Serious: Yes (Disabling, Other)
  Sender: FDA-Public Use
  Company Number: DE-TAKEDA-TPG2013A00568

PATIENT
  Age: 62 Year
  Sex: Male
  Weight: 97 kg

DRUGS (6)
  1. AZILSARTAN MEDOXOMIL [Suspect]
     Indication: ESSENTIAL HYPERTENSION
     Dosage: 40 MG, QD
     Route: 048
     Dates: start: 20121113
  2. AMLODIPINE [Concomitant]
     Indication: HYPERTENSION
     Dosage: 5 MG, BID
     Route: 048
     Dates: start: 20130311
  3. PLATELET AGGREGATION INHIBITORS [Concomitant]
     Route: 065
  4. OTHER THERAPEUTIC PRODUCT [Concomitant]
     Route: 065
  5. L-THYROXIN [Concomitant]
     Indication: HYPOTHYROIDISM
     Dosage: 100 ?G, DAILY
  6. ALLOPURINOL [Concomitant]
     Indication: HYPERURICAEMIA
     Dosage: 100 MG, DAILY

REACTIONS (4)
  - Cardiac failure [Unknown]
  - Myocarditis [Unknown]
  - Respiratory tract infection bacterial [Unknown]
  - Blood creatinine increased [Recovering/Resolving]
